FAERS Safety Report 7649415-9 (Version None)
Quarter: 2011Q3

REPORT INFORMATION
  Report Type: 
  Country: None (occurrence: None)
  Receive Date: 20110727
  Receipt Date: 20110718
  Transmission Date: 20111222
  Serious: Yes (Other)
  Sender: FDA-Public Use
  Company Number: 2011SP033608

PATIENT
  Age: 86 Year
  Sex: Female

DRUGS (4)
  1. CLARITIN [Suspect]
     Indication: RHINORRHOEA
     Dosage: ;ONCE; PO
     Route: 048
     Dates: start: 20110717
  2. CLARITIN [Suspect]
     Indication: LACRIMATION INCREASED
     Dosage: ;ONCE; PO
     Route: 048
     Dates: start: 20110717
  3. CLARITIN [Suspect]
     Indication: EYE PRURITUS
     Dosage: ;ONCE; PO
     Route: 048
     Dates: start: 20110717
  4. CLARITIN [Suspect]
     Indication: OROPHARYNGEAL PAIN
     Dosage: ;ONCE; PO
     Route: 048
     Dates: start: 20110717

REACTIONS (2)
  - EAR PAIN [None]
  - CHEST PAIN [None]
